FAERS Safety Report 14860151 (Version 2)
Quarter: 2018Q3

REPORT INFORMATION
  Report Type: Spontaneous
  Country: US (occurrence: US)
  Receive Date: 20180508
  Receipt Date: 20180709
  Transmission Date: 20181010
  Serious: Yes (Other)
  Sender: FDA-Public Use
  Company Number: US-JNJFOC-20180436417

PATIENT
  Sex: Female
  Weight: 72.58 kg

DRUGS (1)
  1. TREMFYA [Suspect]
     Active Substance: GUSELKUMAB
     Indication: PSORIASIS
     Route: 058
     Dates: start: 20180111, end: 201804

REACTIONS (5)
  - Headache [Recovered/Resolved]
  - Chills [Recovered/Resolved]
  - Pain [Unknown]
  - Migraine [Unknown]
  - Pyrexia [Recovered/Resolved]
